FAERS Safety Report 6276185-1 (Version None)
Quarter: 2009Q3

REPORT INFORMATION
  Report Type: 
  Country: None (occurrence: None)
  Receive Date: 20090722
  Receipt Date: 20090716
  Transmission Date: 20100115
  Serious: Yes (Hospitalization)
  Sender: FDA-Public Use
  Company Number: GB-BRISTOL-MYERS SQUIBB COMPANY-14705669

PATIENT
  Age: 74 Year
  Sex: Female

DRUGS (2)
  1. SINEMET [Suspect]
     Dosage: 1 DF = 700-800MG
  2. ROPINIROLE [Concomitant]

REACTIONS (3)
  - DRUG INEFFECTIVE [None]
  - LIVER DISORDER [None]
  - PANCREATIC CARCINOMA [None]
